FAERS Safety Report 17659906 (Version 1)
Quarter: 2020Q2

REPORT INFORMATION
  Report Type: Spontaneous
  Country: GB (occurrence: GB)
  Receive Date: 20200413
  Receipt Date: 20200413
  Transmission Date: 20200713
  Serious: Yes (Other)
  Sender: FDA-Public Use
  Company Number: GB-TEVA-2020-GB-1222683

PATIENT
  Age: 54 Year
  Sex: Female
  Weight: 67 kg

DRUGS (3)
  1. UTROGESTAN [Concomitant]
     Active Substance: PROGESTERONE
  2. LEVOTHYROXINE SODIUM. [Concomitant]
     Active Substance: LEVOTHYROXINE SODIUM
  3. FEMSEVEN [ESTRADIOL] [Suspect]
     Active Substance: ESTRADIOL
     Dosage: 50MICROGRAMS/24 HOURS
     Route: 062
     Dates: start: 20191101, end: 20191201

REACTIONS (4)
  - Application site irritation [Recovered/Resolved with Sequelae]
  - Application site scar [Unknown]
  - Product prescribing error [Unknown]
  - Application site reaction [Recovered/Resolved with Sequelae]

NARRATIVE: CASE EVENT DATE: 2019
